FAERS Safety Report 8313846-4 (Version None)
Quarter: 2012Q2

REPORT INFORMATION
  Report Type: 
  Country: None (occurrence: None)
  Receive Date: 20120426
  Receipt Date: 20120418
  Transmission Date: 20120825
  Serious: Yes (Hospitalization, Other)
  Sender: FDA-Public Use
  Company Number: US-BAYER-2012-006581

PATIENT
  Age: 34 Year
  Sex: Female
  Weight: 48 kg

DRUGS (13)
  1. TYLENOL W/ CODEINE NO. 3 [Concomitant]
  2. COLACE [Concomitant]
  3. AMBIEN [Concomitant]
     Indication: INSOMNIA
     Dosage: UNK
     Dates: start: 20070101
  4. SOMA [Concomitant]
  5. YAZ [Suspect]
     Indication: PREMENSTRUAL SYNDROME
     Dosage: UNK
     Route: 048
     Dates: start: 20090210, end: 20091103
  6. REGLAN [Concomitant]
     Indication: ABDOMINAL PAIN
     Route: 042
  7. FERROUS SULFATE TAB [Concomitant]
  8. FLUOXETINE [Concomitant]
     Dosage: 10 MG, UNK
     Route: 048
     Dates: start: 20090821
  9. YAZ [Suspect]
     Indication: POLYCYSTIC OVARIES
  10. ZOLPIDEM [Concomitant]
     Dosage: 10 MG, UNK
     Route: 048
     Dates: start: 20090629, end: 20090821
  11. PEPCID [Concomitant]
     Indication: ABDOMINAL PAIN UPPER
  12. EFFEXOR [Concomitant]
     Indication: DEPRESSION
  13. DICLOFENAC POTASSIUM [Concomitant]
     Dosage: 100 MG, UNK
     Route: 048
     Dates: start: 20090318, end: 20091014

REACTIONS (5)
  - CHOLECYSTITIS INFECTIVE [None]
  - ANXIETY [None]
  - PANIC ATTACK [None]
  - MAJOR DEPRESSION [None]
  - GALLBLADDER DISORDER [None]
